FAERS Safety Report 5279558-9 (Version None)
Quarter: 2007Q1

REPORT INFORMATION
  Report Type: 
  Country: None (occurrence: None)
  Receive Date: 20070322
  Receipt Date: 20070309
  Transmission Date: 20070707
  Serious: Yes (Other)
  Sender: FDA-Public Use
  Company Number: 2007-GWUS-0110

PATIENT
  Sex: Female
  Weight: 62.5964 kg

DRUGS (4)
  1. ALDARA [Suspect]
     Indication: BASAL CELL CARCINOMA
     Dosage: APPLICATION - 5XW - TOPICAL
     Route: 061
     Dates: start: 20060601, end: 20060801
  2. ALDARA [Suspect]
     Indication: BASAL CELL CARCINOMA
     Dosage: APPLICATION - 5XW - TOPICAL
     Route: 061
     Dates: start: 20060801, end: 20061001
  3. ALDARA [Suspect]
     Indication: BASAL CELL CARCINOMA
     Dosage: APPLICATION - 5XW - TOPICAL
     Route: 061
     Dates: start: 20061001, end: 20061201
  4. FEXOFENADINE WITH PSEUDOEPHEDRINE (ALLEGRA-D) [Suspect]
     Indication: DRUG USE FOR UNKNOWN INDICATION
     Dosage: 1 - DAILY - PO
     Route: 048

REACTIONS (4)
  - DRUG EXPOSURE DURING PREGNANCY [None]
  - FOETAL GROWTH RETARDATION [None]
  - LUNG DISORDER [None]
  - PREGNANCY [None]
